FAERS Safety Report 6516970-1 (Version None)
Quarter: 2009Q4

REPORT INFORMATION
  Report Type: 
  Country: None (occurrence: None)
  Receive Date: 20091223
  Receipt Date: 20091221
  Transmission Date: 20100525
  Serious: Yes (Hospitalization)
  Sender: FDA-Public Use
  Company Number: PHHO2006US15162

PATIENT
  Sex: Male
  Weight: 96.4 kg

DRUGS (13)
  1. STARLIX [Suspect]
     Dosage: LEVEL 1
     Route: 048
     Dates: start: 20021119
  2. STARLIX [Suspect]
     Dosage: LEVEL 2
     Route: 048
  3. DIOVAN T30230+CAPS [Suspect]
     Indication: CARDIOVASCULAR DISORDER
     Dosage: LEVEL 1
     Route: 048
     Dates: start: 20021119
  4. DIOVAN T30230+CAPS [Suspect]
     Dosage: LEVEL 2
     Route: 048
  5. LIPITOR [Concomitant]
  6. ASPIRIN [Concomitant]
  7. RANITIDINE [Concomitant]
  8. NORVASC [Concomitant]
  9. HYDROCHLOROTHIAZIDE [Concomitant]
  10. VITAMIN E [Concomitant]
  11. NITROGLYCERIN [Concomitant]
  12. LOPRESSOR [Concomitant]
  13. CIPROFLOXACIN [Concomitant]

REACTIONS (5)
  - ARRHYTHMIA [None]
  - ATRIAL FIBRILLATION [None]
  - CARDIAC PACEMAKER INSERTION [None]
  - CHEST DISCOMFORT [None]
  - DISEASE PROGRESSION [None]
